FAERS Safety Report 13323369 (Version 1)
Quarter: 2017Q1

REPORT INFORMATION
  Report Type: Spontaneous
  Country: US (occurrence: US)
  Receive Date: 20170308
  Receipt Date: 20170308
  Transmission Date: 20170428
  Serious: Yes (Hospitalization)
  Sender: FDA-Public Use
  Company Number: US-LUNDBECK-DKLU2023660

PATIENT
  Age: 74 Year
  Sex: Female
  Weight: 47 kg

DRUGS (6)
  1. FLORINEF ACETATE [Concomitant]
     Active Substance: FLUDROCORTISONE ACETATE
     Indication: PRODUCT USED FOR UNKNOWN INDICATION
     Route: 065
  2. STALEVO [Concomitant]
     Active Substance: CARBIDOPA\ENTACAPONE\LEVODOPA
     Indication: PRODUCT USED FOR UNKNOWN INDICATION
     Route: 065
  3. MIDODRINE [Concomitant]
     Active Substance: MIDODRINE
     Indication: PRODUCT USED FOR UNKNOWN INDICATION
     Route: 065
  4. NORTHERA [Suspect]
     Active Substance: DROXIDOPA
     Indication: MULTIPLE SYSTEM ATROPHY
     Route: 048
  5. NORTHERA [Suspect]
     Active Substance: DROXIDOPA
     Indication: ORTHOSTATIC HYPOTENSION
     Route: 065
     Dates: start: 20161006
  6. CELEXA TABLETS [Concomitant]
     Indication: PRODUCT USED FOR UNKNOWN INDICATION
     Route: 065

REACTIONS (3)
  - Fall [Recovering/Resolving]
  - Dizziness [Unknown]
  - Clavicle fracture [Recovering/Resolving]

NARRATIVE: CASE EVENT DATE: 20170114
